FAERS Safety Report 19318170 (Version 2)
Quarter: 2021Q2

REPORT INFORMATION
  Report Type: Spontaneous
  Country: JP (occurrence: JP)
  Receive Date: 20210527
  Receipt Date: 20210609
  Transmission Date: 20210717
  Serious: Yes (Other)
  Sender: FDA-Public Use
  Company Number: JP-JNJFOC-20210544076

PATIENT

DRUGS (1)
  1. DUROTEP [Suspect]
     Active Substance: FENTANYL
     Indication: CANCER PAIN
     Dosage: DOSE UNKNOWN
     Route: 062
     Dates: start: 202105, end: 20210519

REACTIONS (4)
  - Inappropriate schedule of product administration [Unknown]
  - Dyspnoea [Recovered/Resolved]
  - Delirium [Recovered/Resolved]
  - Off label use [Unknown]

NARRATIVE: CASE EVENT DATE: 202105
